FAERS Safety Report 4532459-3 (Version None)
Quarter: 2004Q4

REPORT INFORMATION
  Report Type: 
  Country: None (occurrence: None)
  Receive Date: 20041206
  Receipt Date: 20040921
  Transmission Date: 20050328
  Serious: No
  Sender: FDA-Public Use
  Company Number: USA040978893

PATIENT
  Age: 25 Year
  Sex: Female

DRUGS (2)
  1. CYMBALTA [Suspect]
     Indication: DEPRESSION
     Dates: start: 20040916, end: 20040917
  2. CELEBREX [Concomitant]

REACTIONS (7)
  - ANXIETY [None]
  - DRY MOUTH [None]
  - DYSPNOEA [None]
  - FEELING JITTERY [None]
  - MYDRIASIS [None]
  - NERVOUSNESS [None]
  - PALPITATIONS [None]
